FAERS Safety Report 23338235 (Version 1)
Quarter: 2023Q4

REPORT INFORMATION
  Report Type: Report from Study
  Country: US (occurrence: US)
  Receive Date: 20231226
  Receipt Date: 20231226
  Transmission Date: 20240109
  Serious: Yes (Other)
  Sender: FDA-Public Use
  Company Number: US-ABBVIE-5501527

PATIENT
  Age: 66 Year
  Sex: Male

DRUGS (1)
  1. IMBRUVICA [Suspect]
     Active Substance: IBRUTINIB
     Indication: Mantle cell lymphoma
     Route: 048
     Dates: start: 20210606

REACTIONS (9)
  - Aortic valve incompetence [Unknown]
  - Pain in extremity [Unknown]
  - COVID-19 [Recovering/Resolving]
  - Neuropathy peripheral [Unknown]
  - Gait disturbance [Unknown]
  - Off label use [Unknown]
  - Onychoclasis [Unknown]
  - Haemorrhage [Unknown]
  - Nail infection [Unknown]

NARRATIVE: CASE EVENT DATE: 20210606
